FAERS Safety Report 6243264-4 (Version None)
Quarter: 2009Q2

REPORT INFORMATION
  Report Type: 
  Country: None (occurrence: None)
  Receive Date: 20090624
  Receipt Date: 20090622
  Transmission Date: 20091009
  Serious: Yes (Hospitalization)
  Sender: FDA-Public Use
  Company Number: US-BRISTOL-MYERS SQUIBB COMPANY-14674915

PATIENT
  Age: 66 Year
  Sex: Female
  Weight: 108 kg

DRUGS (3)
  1. CARBOPLATIN [Suspect]
     Indication: NON-SMALL CELL LUNG CANCER
     Dosage: INITIAL DOSE:04MAY2009;CARBO AUC=2/WK
     Dates: start: 20090615, end: 20090615
  2. TAXOL [Suspect]
     Indication: NON-SMALL CELL LUNG CANCER
     Dosage: INITIAL DOSE:04MAY2009;45MG/M2/WK
     Dates: start: 20090615, end: 20090615
  3. RADIATION THERAPY [Suspect]
     Indication: NON-SMALL CELL LUNG CANCER
     Dosage: 1DF=6600CGY;NO OF FRACTIONS:33;NO OF ELASPSED DAYS:49;EXT BEAM,3D;74GY;LAST TREATMENT ON 18JUN09.
     Dates: start: 20090504

REACTIONS (3)
  - DEHYDRATION [None]
  - DIARRHOEA [None]
  - DYSPNOEA [None]
